FAERS Safety Report 21830823 (Version 1)
Quarter: 2023Q1

REPORT INFORMATION
  Report Type: Report from Study
  Country: AR (occurrence: AR)
  Receive Date: 20230106
  Receipt Date: 20230106
  Transmission Date: 20230418
  Serious: Yes (Other)
  Sender: FDA-Public Use
  Company Number: AR-002147023-NVSC2023AR002252

PATIENT
  Age: 74 Year
  Sex: Male

DRUGS (1)
  1. GLYCOPYRRONIUM\INDACATEROL [Suspect]
     Active Substance: GLYCOPYRRONIUM\INDACATEROL
     Indication: Chronic obstructive pulmonary disease
     Dosage: UNK
     Route: 065
     Dates: start: 2015

REACTIONS (9)
  - Choking [Unknown]
  - Cardiovascular disorder [Unknown]
  - Gait disturbance [Unknown]
  - Movement disorder [Unknown]
  - Grip strength decreased [Unknown]
  - Obstructive airways disorder [Unknown]
  - Hypersensitivity [Unknown]
  - Fatigue [Unknown]
  - Inappropriate schedule of product administration [Unknown]

NARRATIVE: CASE EVENT DATE: 20170101
